FAERS Safety Report 17236299 (Version 1)
Quarter: 2020Q1

REPORT INFORMATION
  Report Type: Spontaneous
  Country: US (occurrence: US)
  Receive Date: 20200103
  Receipt Date: 20200103
  Transmission Date: 20200409
  Serious: Yes (Other)
  Sender: FDA-Public Use
  Company Number: None

PATIENT
  Age: 54 Year
  Sex: Female
  Weight: 63.9 kg

DRUGS (1)
  1. ZUBSOLV [Suspect]
     Active Substance: BUPRENORPHINE HYDROCHLORIDE\NALOXONE HYDROCHLORIDE
     Indication: DRUG DEPENDENCE
     Route: 060
     Dates: start: 20170220, end: 20191219

REACTIONS (5)
  - Oral pain [None]
  - Oral mucosal erythema [None]
  - Oral mucosal blistering [None]
  - Mouth ulceration [None]
  - Product formulation issue [None]

NARRATIVE: CASE EVENT DATE: 20191219
